FAERS Safety Report 10371316 (Version 2)
Quarter: 2014Q4

REPORT INFORMATION
  Report Type: Not Available
  Country: GB (occurrence: GB)
  Receive Date: 20140808
  Receipt Date: 20141003
  Transmission Date: 20150528
  Serious: Yes (Life-Threatening, Hospitalization, Other)
  Sender: FDA-Public Use
  Company Number: GB-MUNDIPHARMA DS AND PHARMACOVIGILANCE-GBR-2014-0019818

PATIENT
  Age: 32 Year
  Sex: Female
  Weight: 42.5 kg

DRUGS (3)
  1. CLONAZEPAM. [Concomitant]
     Active Substance: CLONAZEPAM
  2. OXYCONTIN [Suspect]
     Active Substance: OXYCODONE HYDROCHLORIDE
     Indication: ARTHRALGIA
     Dosage: UNK
     Route: 048
     Dates: start: 20130823, end: 20130916
  3. GABAPENTIN. [Concomitant]
     Active Substance: GABAPENTIN

REACTIONS (9)
  - Syncope [Recovered/Resolved]
  - Condition aggravated [Unknown]
  - Toxicity to various agents [Unknown]
  - Areflexia [Recovered/Resolved]
  - Depressed level of consciousness [Recovered/Resolved]
  - Seizure [Recovered/Resolved]
  - Delayed recovery from anaesthesia [Recovered/Resolved]
  - Loss of consciousness [Recovered/Resolved]
  - Hyperhidrosis [Recovered/Resolved]

NARRATIVE: CASE EVENT DATE: 20130823
